FAERS Safety Report 4661472-0 (Version None)
Quarter: 2005Q2

REPORT INFORMATION
  Report Type: 
  Country: None (occurrence: None)
  Receive Date: 20050512
  Receipt Date: 20050512
  Transmission Date: 20051028
  Serious: Yes (Life-Threatening, Hospitalization)
  Sender: FDA-Public Use
  Company Number: None

PATIENT
  Age: 63 Year
  Sex: Male

DRUGS (2)
  1. DIGOXIN [Suspect]
     Dosage: 0.25MG   QDAY
  2. COREG [Suspect]
     Dosage: 25MG    BID

REACTIONS (1)
  - CARDIOACTIVE DRUG LEVEL INCREASED [None]
